FAERS Safety Report 7046192 (Version 2)
Quarter: 2013Q4

REPORT INFORMATION
  Report Type: Spontaneous
  Country: US (occurrence: None)
  Receive Date: 20090630
  Receipt Date: 20131108
  Transmission Date: 20140711
  Serious: Yes (Hospitalization)
  Sender: FDA-Public Use
  Company Number: 2009S1004869

PATIENT
  Age: 55 Year
  Sex: Female
  Weight: 77.11 kg

DRUGS (13)
  1. SODIUM PHOSPHATE [Suspect]
     Indication: PRODUCT USED FOR UNKNOWN INDICATION
     Dosage: 90 ML; TOTAL; PO
     Route: 048
     Dates: start: 20040511, end: 20040511
  2. MIRALAX [Concomitant]
  3. ELAVIL (AMITRIPTYLINE HYDROCHLORIDE) [Concomitant]
  4. ASPIRIN (ACETYLSALICYLIC ACID) [Concomitant]
  5. VERELAN [Concomitant]
  6. LIPITOR (ATORVASTATIN CALCIUM) [Concomitant]
  7. CELEBREX (CELECOXIB) [Concomitant]
  8. TRAZODONE (TRAZODONE) [Concomitant]
  9. BACLOFEN [Concomitant]
  10. LASIX (FUROSEMIDE) [Concomitant]
  11. ACCUPRIL [Concomitant]
  12. TOPROL XL [Concomitant]
  13. ZELNORM [Concomitant]

REACTIONS (5)
  - Muscle disorder [None]
  - Paraesthesia [None]
  - Renal failure acute [None]
  - Dehydration [None]
  - Syncope [None]
